FAERS Safety Report 10695802 (Version 3)
Quarter: 2015Q1

REPORT INFORMATION
  Report Type: Spontaneous
  Country: US (occurrence: US)
  Receive Date: 20150107
  Receipt Date: 20150210
  Transmission Date: 20150721
  Serious: Yes (Hospitalization)
  Sender: FDA-Public Use
  Company Number: US-B.I. PHARMACEUTICALS,INC./RIDGEFIELD-2015-BI-00027BP

PATIENT
  Age: 74 Year
  Sex: Male
  Weight: 83.46 kg

DRUGS (2)
  1. SPIRIVA [Suspect]
     Active Substance: TIOTROPIUM BROMIDE MONOHYDRATE
     Indication: CHRONIC OBSTRUCTIVE PULMONARY DISEASE
     Dosage: 18 MCG
     Route: 055
     Dates: start: 2009
  2. XANAX [Concomitant]
     Active Substance: ALPRAZOLAM
     Indication: NERVOUSNESS
     Route: 048

REACTIONS (4)
  - Nervousness [Not Recovered/Not Resolved]
  - Product quality issue [Unknown]
  - Chronic obstructive pulmonary disease [Recovered/Resolved]
  - Depression [Not Recovered/Not Resolved]

NARRATIVE: CASE EVENT DATE: 201412
